FAERS Safety Report 17401274 (Version 1)
Quarter: 2020Q1

REPORT INFORMATION
  Report Type: Spontaneous
  Country: US (occurrence: US)
  Receive Date: 20200127
  Receipt Date: 20200127
  Transmission Date: 20200409
  Serious: Yes (Other)
  Sender: FDA-Public Use
  Company Number: None

PATIENT
  Age: 70 Year
  Sex: Female
  Weight: 93 kg

DRUGS (1)
  1. FLUTICASONE/SALMETEROL (FLUTICASONE 250MCG/SALMETEROL 50MCG INHL, ORAL [Suspect]
     Active Substance: FLUTICASONE PROPIONATE\SALMETEROL XINAFOATE
     Indication: ASTHMA

REACTIONS (3)
  - Therapeutic product effect incomplete [None]
  - Product substitution issue [None]
  - Dyspnoea [None]

NARRATIVE: CASE EVENT DATE: 20200121
